FAERS Safety Report 12804085 (Version 1)
Quarter: 2016Q4

REPORT INFORMATION
  Report Type: Spontaneous
  Country: US (occurrence: US)
  Receive Date: 20161002
  Receipt Date: 20161002
  Transmission Date: 20170207
  Serious: Yes (Hospitalization, Disabling, Other)
  Sender: FDA-Public Use
  Company Number: None

PATIENT
  Age: 10 Month
  Sex: Male
  Weight: 12.6 kg

DRUGS (4)
  1. CHILDRENS BENADRYL ALLERGY [Concomitant]
     Active Substance: DIPHENHYDRAMINE HYDROCHLORIDE
  2. HOMEOPATHIC TEETHING GEL [Suspect]
     Active Substance: HOMEOPATHICS
     Indication: TEETHING
     Route: 061
     Dates: start: 20140701, end: 20140901
  3. CHILDRENS TYLENOL [Concomitant]
     Active Substance: ACETAMINOPHEN
  4. CHILDREN^S ALLEGRA [Concomitant]

REACTIONS (5)
  - Cyanosis [None]
  - Developmental delay [None]
  - Fatigue [None]
  - Respiratory arrest [None]
  - Partial seizures [None]

NARRATIVE: CASE EVENT DATE: 20140901
